FAERS Safety Report 26207382 (Version 1)
Quarter: 2025Q4

REPORT INFORMATION
  Report Type: Spontaneous
  Country: EU (occurrence: EU)
  Receive Date: 20251229
  Receipt Date: 20251229
  Transmission Date: 20260118
  Serious: Yes (Other)
  Sender: TEVA
  Company Number: None

PATIENT
  Age: 43 Year
  Sex: Female
  Weight: 52 kg

DRUGS (3)
  1. PACLITAXEL [Suspect]
     Active Substance: PACLITAXEL
     Indication: Breast cancer
     Dosage: TIME INTERVAL: TOTAL
     Route: 042
     Dates: start: 20251023, end: 20251113
  2. SOLUPRED [Concomitant]
     Indication: Product used for unknown indication
     Route: 065
  3. LIPEGFILGRASTIM [Concomitant]
     Active Substance: LIPEGFILGRASTIM
     Indication: Product used for unknown indication
     Dosage: ((BACTERIA/ESCHERICHIA COLI))
     Route: 065

REACTIONS (4)
  - Hypoacusis [Recovering/Resolving]
  - Neuropathy peripheral [Recovering/Resolving]
  - Tinnitus [Recovering/Resolving]
  - Arthralgia [Recovering/Resolving]

NARRATIVE: CASE EVENT DATE: 20251024
